FAERS Safety Report 5635917-3 (Version None)
Quarter: 2008Q1

REPORT INFORMATION
  Report Type: 
  Country: None (occurrence: None)
  Receive Date: 20080219
  Receipt Date: 20080205
  Transmission Date: 20080703
  Serious: Yes (Other)
  Sender: FDA-Public Use
  Company Number: 08H-144-0313836-00

PATIENT
  Age: 77 Year
  Sex: Female

DRUGS (6)
  1. DOBUTAMINE HCL [Suspect]
     Indication: POSITIVE CARDIAC INOTROPIC EFFECT
     Dosage: 7 MCG/KG/MIN
  2. DOPAMINE HCL [Suspect]
     Indication: POSITIVE CARDIAC INOTROPIC EFFECT
     Dosage: 5 MCG/KG/MIN
  3. NORADRENALIN (NOREPINEPHRINE) [Suspect]
     Indication: HYPOTENSION
     Dosage: 0.4 MCG/KG/MIN
  4. GENERAL ANESTHESIA(ANESTHETICS, GENERAL) [Concomitant]
  5. BLOOD DERIVATIVES (BLOOD AND RELATED PRODUCTS) [Concomitant]
  6. REMIFENTANIL (REMIFENTANIL) [Concomitant]

REACTIONS (7)
  - ABDOMINAL DISTENSION [None]
  - CARDIAC FAILURE [None]
  - LEFT VENTRICLE OUTFLOW TRACT OBSTRUCTION [None]
  - LEFT VENTRICULAR HYPERTROPHY [None]
  - MUCOSAL DISCOLOURATION [None]
  - PALLOR [None]
  - VAGINAL DISCHARGE [None]
